FAERS Safety Report 21350026 (Version 2)
Quarter: 2023Q1

REPORT INFORMATION
  Report Type: Spontaneous
  Country: US (occurrence: US)
  Receive Date: 20220919
  Receipt Date: 20230224
  Transmission Date: 20230418
  Serious: Yes (Other)
  Sender: FDA-Public Use
  Company Number: US-AMGEN-USASP2022159286

PATIENT
  Sex: Female

DRUGS (3)
  1. AIMOVIG [Suspect]
     Active Substance: ERENUMAB-AOOE
     Indication: Immunosuppression
     Dosage: UNK
     Route: 065
  2. AIMOVIG [Suspect]
     Active Substance: ERENUMAB-AOOE
     Indication: Off label use
  3. TEPEZZA [Concomitant]
     Active Substance: TEPROTUMUMAB-TRBW
     Indication: Endocrine ophthalmopathy
     Dosage: UNK
     Route: 042

REACTIONS (16)
  - Surgical failure [Unknown]
  - Colitis ulcerative [Unknown]
  - Cataract [Unknown]
  - Decreased immune responsiveness [Unknown]
  - Eye irritation [Unknown]
  - Nail growth abnormal [Not Recovered/Not Resolved]
  - Gastritis [Unknown]
  - Diplopia [Unknown]
  - Eye inflammation [Unknown]
  - Periorbital swelling [Unknown]
  - Blood glucose increased [Unknown]
  - Off label use [Unknown]
  - Onychoclasis [Unknown]
  - Visual impairment [Unknown]
  - Alopecia [Unknown]
  - Muscle spasms [Unknown]
